FAERS Safety Report 8234439-3 (Version None)
Quarter: 2012Q1

REPORT INFORMATION
  Report Type: 
  Country: None (occurrence: None)
  Receive Date: 20120326
  Receipt Date: 20120316
  Transmission Date: 20120608
  Serious: Yes (Hospitalization, Other)
  Sender: FDA-Public Use
  Company Number: CO-ROCHE-1052222

PATIENT
  Sex: Female

DRUGS (1)
  1. XOLAIR [Suspect]
     Indication: ASTHMA
     Dates: end: 20110801

REACTIONS (6)
  - ASTHMATIC CRISIS [None]
  - PNEUMONIA [None]
  - RESPIRATORY DISTRESS [None]
  - ABSCESS [None]
  - LUNG INFECTION [None]
  - VASCULITIS [None]
